FAERS Safety Report 17210868 (Version 1)
Quarter: 2019Q4

REPORT INFORMATION
  Report Type: Spontaneous
  Country: CA (occurrence: CA)
  Receive Date: 20191227
  Receipt Date: 20191227
  Transmission Date: 20200122
  Serious: Yes (Other)
  Sender: FDA-Public Use
  Company Number: CA-CELLTRION INC.-2019CA025992

PATIENT

DRUGS (9)
  1. INFLECTRA [Suspect]
     Active Substance: INFLIXIMAB-DYYB
     Dosage: 300 MG,(Q 0, 2, 6 WEEKS, THEN EVERY 8 WEEKS)
     Dates: start: 20191203
  2. PREDNISONE. [Concomitant]
     Active Substance: PREDNISONE
     Dosage: 50 MG, DAILY (TAPER BY 5 MG EVERY WEEK)
     Route: 065
  3. INFLECTRA [Suspect]
     Active Substance: INFLIXIMAB-DYYB
     Dosage: 300 MG,(Q 0, 2, 6 WEEKS, THEN EVERY 8 WEEKS)
     Route: 042
     Dates: start: 20191017
  4. INFLECTRA [Suspect]
     Active Substance: INFLIXIMAB-DYYB
     Indication: COLITIS ULCERATIVE
     Dosage: 300 MG,(Q 0, 2, 6 WEEKS, THEN EVERY 8 WEEKS)
     Route: 042
     Dates: start: 20191017
  5. INFLECTRA [Suspect]
     Active Substance: INFLIXIMAB-DYYB
     Dosage: 300 MG,(Q 0, 2, 6 WEEKS, THEN EVERY 8 WEEKS)
     Dates: start: 20191203, end: 20191203
  6. INFLECTRA [Suspect]
     Active Substance: INFLIXIMAB-DYYB
     Dosage: 300 MG,(Q 0, 2, 6 WEEKS, THEN EVERY 8 WEEKS)
     Route: 042
     Dates: start: 20191017
  7. INFLECTRA [Suspect]
     Active Substance: INFLIXIMAB-DYYB
     Dosage: 300 MG,(Q 0, 2, 6 WEEKS, THEN EVERY 8 WEEKS)
     Route: 042
     Dates: start: 20191029
  8. INFLECTRA [Suspect]
     Active Substance: INFLIXIMAB-DYYB
     Dosage: 300 MG,(Q 0, 2, 6 WEEKS, THEN EVERY 8 WEEKS)
     Route: 042
     Dates: start: 20191017
  9. KCL [Concomitant]
     Active Substance: POTASSIUM CHLORIDE
     Dosage: UNK (TABLETS FOR 5 DAYS)
     Route: 065

REACTIONS (15)
  - Vomiting [Unknown]
  - Pruritus [Recovered/Resolved]
  - Blood pressure fluctuation [Unknown]
  - Urticaria [Unknown]
  - Condition aggravated [Unknown]
  - Drug hypersensitivity [Unknown]
  - Heart rate irregular [Unknown]
  - Dyspnoea [Unknown]
  - Ear infection [Recovered/Resolved]
  - Hot flush [Recovered/Resolved]
  - Rash [Unknown]
  - Joint injury [Unknown]
  - Arthropathy [Unknown]
  - Ankle fracture [Unknown]
  - Chest discomfort [Unknown]

NARRATIVE: CASE EVENT DATE: 201910
